FAERS Safety Report 7488570-0 (Version None)
Quarter: 2011Q2

REPORT INFORMATION
  Report Type: 
  Country: None (occurrence: None)
  Receive Date: 20110518
  Receipt Date: 20080812
  Transmission Date: 20111010
  Serious: Yes (Death, Hospitalization, Other)
  Sender: FDA-Public Use
  Company Number: US-BAYER-200830905NA

PATIENT
  Age: 69 Year
  Sex: Female
  Weight: 57 kg

DRUGS (14)
  1. ACETYLSALICYLIC ACID SRT [Concomitant]
     Dosage: 81 MG, QD
     Route: 048
  2. COZAAR [Concomitant]
     Dosage: 25 MG, QD
     Route: 048
  3. VERSED [Concomitant]
     Dosage: 10 MG, UNK
     Route: 042
     Dates: start: 20050831, end: 20050831
  4. ANCEF [Concomitant]
     Dosage: 1 GRAM PRIME
     Dates: start: 20050831, end: 20050831
  5. MANNITOL [Concomitant]
     Dosage: PRIME
     Dates: start: 20050831, end: 20050831
  6. TRASYLOL [Suspect]
     Indication: AORTIC VALVE REPLACEMENT
  7. FRESH FROZEN PLASMA [Concomitant]
     Dosage: 2 U, UNK
     Dates: start: 20050831
  8. ACETAMINOPHEN [Concomitant]
  9. ANCEF [Concomitant]
     Dosage: 1 G, UNK
     Route: 042
     Dates: start: 20050831, end: 20050831
  10. TRASYLOL [Suspect]
     Indication: TRICUSPID VALVE REPAIR
  11. RED BLOOD CELLS [Concomitant]
     Dosage: 2 U, UNK
     Dates: start: 20050831
  12. TRASYLOL [Suspect]
     Indication: CORONARY ARTERY BYPASS
     Dosage: 1 ML, 200 ML, THEN CONTINUOUS INFUSION AT 50 ML/HOUR
     Route: 042
     Dates: start: 20050831, end: 20050831
  13. TRASYLOL [Suspect]
     Indication: MITRAL VALVE REPAIR
  14. HEPARIN [Concomitant]
     Dosage: 10000 U, UNK
     Dates: start: 20050831, end: 20050831

REACTIONS (10)
  - DEATH [None]
  - UNEVALUABLE EVENT [None]
  - DISABILITY [None]
  - RENAL FAILURE [None]
  - ANXIETY [None]
  - FEAR [None]
  - DEPRESSION [None]
  - PAIN [None]
  - ANHEDONIA [None]
  - INJURY [None]
